FAERS Safety Report 20153463 (Version 1)
Quarter: 2021Q4

REPORT INFORMATION
  Report Type: Report from Study
  Country: US (occurrence: US)
  Receive Date: 20211206
  Receipt Date: 20211206
  Transmission Date: 20220303
  Serious: Yes (Hospitalization)
  Sender: FDA-Public Use
  Company Number: US-BAXTER-2019BAX014603

PATIENT
  Age: 14 Year
  Sex: Male
  Weight: 75.9 kg

DRUGS (24)
  1. RUXOLITINIB [Suspect]
     Active Substance: RUXOLITINIB
     Indication: Philadelphia positive acute lymphocytic leukaemia
     Dosage: TABLET RUXOLITINIB, FIRST DOSE.
     Route: 048
     Dates: start: 20181120
  2. RUXOLITINIB [Suspect]
     Active Substance: RUXOLITINIB
     Dosage: LAST DOSE PRIOR TO SAE OF RESPIRATORY FAILURE AND HEMATURIA.
     Route: 048
  3. RUXOLITINIB [Suspect]
     Active Substance: RUXOLITINIB
     Dosage: LAST DOSE PRIOR TO SAES OF LUNG INFECTION.
     Route: 048
     Dates: start: 20190625, end: 20190625
  4. RUXOLITINIB [Suspect]
     Active Substance: RUXOLITINIB
     Dosage: DURATION: 7 MONTHS 20 DAYS
     Route: 048
     Dates: end: 20190709
  5. VINCRISTINE [Suspect]
     Active Substance: VINCRISTINE
     Indication: Philadelphia positive acute lymphocytic leukaemia
     Dosage: FIRST DOSE
     Route: 042
     Dates: start: 20181204
  6. VINCRISTINE [Suspect]
     Active Substance: VINCRISTINE
     Dosage: LAST DOSE PRIOR TO ALL THE SAES EXCEPT RESPIRATORY FAILURE AND HEMATURIA
     Route: 042
     Dates: start: 20190625, end: 20190625
  7. VINCRISTINE [Suspect]
     Active Substance: VINCRISTINE
     Dosage: LAST DOSE PRIOR TO SAES OF RESPIRATORY FAILURE AND HEMATURIA.
     Route: 042
     Dates: start: 20190702, end: 20190702
  8. VINCRISTINE [Suspect]
     Active Substance: VINCRISTINE
     Dosage: DURATION: 7 MONTHS 6 DAYS
     Route: 042
     Dates: end: 20190709
  9. METHOTREXATE [Suspect]
     Active Substance: METHOTREXATE
     Indication: Philadelphia positive acute lymphocytic leukaemia
     Dosage: FIRST DOSE.
     Route: 037
     Dates: start: 20181120
  10. METHOTREXATE [Suspect]
     Active Substance: METHOTREXATE
     Dosage: LAST DOSE PRIOR TO ALL THE SAES EXCEPT RESPIRATORY FAILURE AND HEMATURIA
     Route: 037
     Dates: start: 20190618, end: 20190618
  11. METHOTREXATE [Suspect]
     Active Substance: METHOTREXATE
     Dosage: LAST DOSE PRIOR TO SAES OF RESPIRATORY FAILURE AND HEMATURIA
     Route: 037
  12. METHOTREXATE [Suspect]
     Active Substance: METHOTREXATE
     Route: 037
     Dates: end: 20190808
  13. METHOTREXATE [Suspect]
     Active Substance: METHOTREXATE
     Dosage: DURATION: 7 MONTHS 20 DAYS
     Route: 037
     Dates: end: 20190709
  14. CYTARABINE [Suspect]
     Active Substance: CYTARABINE
     Indication: Philadelphia positive acute lymphocytic leukaemia
     Dosage: FIRST DOSE.
     Route: 042
     Dates: start: 20181120
  15. CYTARABINE [Suspect]
     Active Substance: CYTARABINE
     Dosage: LAST DOSE PRIOR TO ALL THE SAES EXCEPT RESPIRATORY FAILURE AND HEMATURIA
     Route: 042
     Dates: start: 20190618, end: 20190618
  16. CYTARABINE [Suspect]
     Active Substance: CYTARABINE
     Dosage: LAST DOSE PRIOR TO SAES OF RESPIRATORY FAILURE AND HEMATURIA
     Route: 042
  17. CYTARABINE [Suspect]
     Active Substance: CYTARABINE
     Route: 042
     Dates: end: 20190808
  18. CYTARABINE [Suspect]
     Active Substance: CYTARABINE
     Dosage: DURATION: 6 MONTHS 30 DAYS
     Route: 042
     Dates: end: 20190618
  19. THIOGUANINE [Suspect]
     Active Substance: THIOGUANINE
     Indication: Philadelphia positive acute lymphocytic leukaemia
     Dosage: FORM OF ADMINISTRATION- TABLETS, FIRST DOSE
     Route: 048
     Dates: start: 20190611
  20. THIOGUANINE [Suspect]
     Active Substance: THIOGUANINE
     Dosage: LAST DOSE PRIOR TO ALL THE SAES EXCEPT RESPIRATORY FAILURE AND HEMATURIA
     Route: 048
     Dates: start: 20190625, end: 20190625
  21. THIOGUANINE [Suspect]
     Active Substance: THIOGUANINE
     Dosage: LAST DOSE PRIOR TO RESPIRATORY FAILURE AND HEMATURIA
     Route: 048
  22. THIOGUANINE [Suspect]
     Active Substance: THIOGUANINE
     Dosage: FORM OF ADMINISTRATION- TABLETS
     Route: 048
     Dates: start: 20190625
  23. PEGASPARGASE [Suspect]
     Active Substance: PEGASPARGASE
     Indication: Philadelphia positive acute lymphocytic leukaemia
     Dosage: IU/M2, FIRST AND LAST DOSE PRIOR TO SAES
     Route: 042
     Dates: start: 20191204, end: 20191204
  24. PEGASPARGASE [Suspect]
     Active Substance: PEGASPARGASE
     Dosage: LAST DOSE PRIOR TO RESPIRATORY FAILURE AND HEMATURIA
     Route: 042

REACTIONS (2)
  - Pneumonia [Recovered/Resolved]
  - Bacteraemia [Recovered/Resolved]

NARRATIVE: CASE EVENT DATE: 20190625
